FAERS Safety Report 25820055 (Version 2)
Quarter: 2025Q4

REPORT INFORMATION
  Report Type: Report from Study
  Country: CA (occurrence: CA)
  Receive Date: 20250918
  Receipt Date: 20251010
  Transmission Date: 20260118
  Serious: Yes (Other)
  Sender: ABBVIE
  Company Number: CA-ABBVIE-6458947

PATIENT
  Age: 31 Year
  Sex: Male

DRUGS (1)
  1. SKYRIZI [Suspect]
     Active Substance: RISANKIZUMAB-RZAA
     Indication: Psoriasis
     Dosage: FORM STRENGTH 150MG/ML
     Route: 058
     Dates: start: 20250304

REACTIONS (3)
  - Tooth infection [Recovering/Resolving]
  - Nephrolithiasis [Unknown]
  - Tooth fracture [Recovering/Resolving]

NARRATIVE: CASE EVENT DATE: 20250101
